FAERS Safety Report 9518198 (Version 1)
Quarter: 2013Q3

REPORT INFORMATION
  Report Type: Spontaneous
  Country: US (occurrence: None)
  Receive Date: 20130910
  Receipt Date: 20130910
  Transmission Date: 20140515
  Serious: Yes (Disabling)
  Sender: FDA-Public Use
  Company Number: None

PATIENT
  Age: 71 Year
  Sex: Female
  Weight: 77.11 kg

DRUGS (1)
  1. LISINIPRIL 5MG [Suspect]
     Indication: HYPERTENSION
     Route: 048

REACTIONS (3)
  - Muscle spasms [None]
  - Insomnia [None]
  - Activities of daily living impaired [None]
